FAERS Safety Report 7346869-2 (Version None)
Quarter: 2011Q1

REPORT INFORMATION
  Report Type: 
  Country: None (occurrence: None)
  Receive Date: 20110302
  Receipt Date: 20110113
  Transmission Date: 20110831
  Serious: No
  Sender: FDA-Public Use
  Company Number: 2011-00018

PATIENT
  Age: 72 Year
  Sex: Female
  Weight: 60.782 kg

DRUGS (4)
  1. ZICAM COLD REMEDY RAPIDMELTS W/ VITAMIN C + ECHINACEA [Suspect]
     Dosage: 2 DOSES
     Dates: start: 20110111, end: 20110111
  2. ATENOLOL [Concomitant]
  3. TRICOR [Concomitant]
  4. PRILOSEC [Concomitant]

REACTIONS (2)
  - AGEUSIA [None]
  - ANOSMIA [None]
